FAERS Safety Report 6139914-3 (Version None)
Quarter: 2009Q2

REPORT INFORMATION
  Report Type: 
  Country: None (occurrence: None)
  Receive Date: 20090401
  Receipt Date: 20090324
  Transmission Date: 20091009
  Serious: Yes (Death, Life-Threatening, Disabling)
  Sender: FDA-Public Use
  Company Number: GB-MERCK-0903GBR00053

PATIENT
  Age: 70 Year
  Sex: Male

DRUGS (23)
  1. ZOCOR [Suspect]
     Indication: HYPERCHOLESTEROLAEMIA
     Route: 048
     Dates: start: 20050101, end: 20081209
  2. ZOCOR [Suspect]
     Indication: MYOCARDIAL ISCHAEMIA
     Route: 048
     Dates: start: 20050101, end: 20081209
  3. CLARITHROMYCIN [Concomitant]
     Indication: LOWER RESPIRATORY TRACT INFECTION
     Route: 048
     Dates: start: 20081208, end: 20081209
  4. ERYTHROMYCIN [Concomitant]
     Indication: LOWER RESPIRATORY TRACT INFECTION
     Route: 048
     Dates: start: 20081204, end: 20081208
  5. FUSIDATE SODIUM [Concomitant]
     Indication: INTERVERTEBRAL DISCITIS
     Route: 048
     Dates: start: 20081113, end: 20081216
  6. FUSIDATE SODIUM [Concomitant]
     Indication: MUSCLE ABSCESS
     Route: 048
     Dates: start: 20081113, end: 20081216
  7. AMITRIPTYLINE HYDROCHLORIDE [Concomitant]
     Route: 065
  8. ASPIRIN [Concomitant]
     Route: 065
  9. COSOPT [Concomitant]
     Route: 065
  10. DICLOFENAC [Concomitant]
     Route: 065
  11. FENTANYL [Concomitant]
     Route: 065
  12. FLOXACILLIN [Concomitant]
     Route: 065
  13. GABAPENTIN [Concomitant]
     Route: 065
  14. GLUCOSAMINE [Concomitant]
     Route: 065
  15. LACTULOSE [Concomitant]
     Route: 065
  16. LISINOPRIL [Concomitant]
     Route: 065
  17. MAGNESIUM HYDROXIDE [Concomitant]
     Route: 065
  18. POLYETHYLENE GLYCOL 3350 AND POTASSIUM CHLORIDE AND SODIUM BICARBONATE [Concomitant]
     Route: 065
  19. ACETAMINOPHEN [Concomitant]
     Route: 065
  20. SENNA [Concomitant]
     Route: 065
  21. TIOTROPIUM BROMIDE [Concomitant]
     Route: 065
  22. TRAMADOL HYDROCHLORIDE [Concomitant]
     Route: 065
  23. LATANOPROST [Concomitant]
     Route: 065

REACTIONS (4)
  - MUSCULAR WEAKNESS [None]
  - RENAL FAILURE ACUTE [None]
  - RESPIRATORY DISORDER [None]
  - RHABDOMYOLYSIS [None]
